FAERS Safety Report 9546400 (Version 1)
Quarter: 2013Q3

REPORT INFORMATION
  Report Type: Spontaneous
  Country: US (occurrence: US)
  Receive Date: 20130923
  Receipt Date: 20130923
  Transmission Date: 20140515
  Serious: No
  Sender: FDA-Public Use
  Company Number: US-GLAXOSMITHKLINE-A1030059A

PATIENT
  Age: 47 Year
  Sex: Female

DRUGS (3)
  1. ABREVA [Suspect]
     Indication: ORAL HERPES
     Dates: start: 20130613, end: 20130613
  2. PREDNISONE [Concomitant]
  3. CETIRIZINE [Concomitant]

REACTIONS (11)
  - Hypersensitivity [Not Recovered/Not Resolved]
  - Urticaria [Recovered/Resolved]
  - Blister [Not Recovered/Not Resolved]
  - Burning sensation [Recovered/Resolved]
  - Formication [Recovered/Resolved]
  - Erythema [Recovered/Resolved]
  - Pruritus generalised [Recovered/Resolved]
  - Feeling hot [Recovered/Resolved]
  - Flushing [Recovered/Resolved]
  - Dyspnoea [Recovered/Resolved]
  - Ocular hyperaemia [Recovered/Resolved]
